FAERS Safety Report 7586247-4 (Version None)
Quarter: 2011Q3

REPORT INFORMATION
  Report Type: 
  Country: None (occurrence: None)
  Receive Date: 20110701
  Receipt Date: 20110629
  Transmission Date: 20111222
  Serious: Yes (Other)
  Sender: FDA-Public Use
  Company Number: US-SANOFI-AVENTIS-2011SA041513

PATIENT
  Age: 77 Year
  Sex: Female

DRUGS (5)
  1. TENORMIN [Concomitant]
  2. LISINOPRIL [Concomitant]
  3. MULTAQ [Suspect]
     Indication: ATRIAL FIBRILLATION
     Route: 048
     Dates: start: 20110626
  4. WARFARIN SODIUM [Concomitant]
  5. NIFEDIPINE [Concomitant]

REACTIONS (7)
  - HEART RATE DECREASED [None]
  - GLAUCOMA [None]
  - VISION BLURRED [None]
  - HEADACHE [None]
  - VISUAL IMPAIRMENT [None]
  - ATRIAL FIBRILLATION [None]
  - CHEST DISCOMFORT [None]
